FAERS Safety Report 13382285 (Version 7)
Quarter: 2019Q1

REPORT INFORMATION
  Report Type: Spontaneous
  Country: CL (occurrence: CL)
  Receive Date: 20170329
  Receipt Date: 20190212
  Transmission Date: 20190417
  Serious: Yes (Life-Threatening, Hospitalization, Other)
  Sender: FDA-Public Use
  Company Number: CL-PFIZER INC-2017130231

PATIENT
  Age: 9 Month
  Sex: Female

DRUGS (3)
  1. CEFTRIAXONE SODIUM. [Suspect]
     Active Substance: CEFTRIAXONE SODIUM
     Indication: PNEUMONIA VIRAL
     Dosage: UNK
  2. METHADONE [Concomitant]
     Active Substance: METHADONE HYDROCHLORIDE
     Indication: PNEUMONIA VIRAL
     Dosage: UNK
  3. PALIVIZUMAB [Concomitant]
     Active Substance: PALIVIZUMAB
     Indication: PNEUMONIA VIRAL
     Dosage: 15 MG/KG, UNK
     Route: 030

REACTIONS (3)
  - Drug reaction with eosinophilia and systemic symptoms [Recovered/Resolved]
  - Hepatic function abnormal [Unknown]
  - Product use in unapproved indication [Unknown]
